FAERS Safety Report 7201953-9 (Version None)
Quarter: 2010Q4

REPORT INFORMATION
  Report Type: 
  Country: None (occurrence: None)
  Receive Date: 20101215
  Receipt Date: 20100611
  Transmission Date: 20110411
  Serious: No
  Sender: FDA-Public Use
  Company Number: 20063199

PATIENT
  Sex: Male

DRUGS (1)
  1. LIORESAL [Suspect]
     Indication: MUSCLE SPASTICITY
     Dosage: 907 MCG, DAILY, INTRATHECAL
     Route: 037

REACTIONS (3)
  - IMPLANT SITE INFECTION [None]
  - MUSCLE SPASMS [None]
  - SKIN DISORDER [None]
